FAERS Safety Report 8555413-3 (Version None)
Quarter: 2012Q3

REPORT INFORMATION
  Report Type: 
  Country: None (occurrence: None)
  Receive Date: 20120731
  Receipt Date: 20111104
  Transmission Date: 20120928
  Serious: Yes (Other)
  Sender: FDA-Public Use
  Company Number: US-ASTRAZENECA-2011SE42236

PATIENT
  Age: 63 Year
  Sex: Female

DRUGS (5)
  1. SEROQUEL XR [Suspect]
     Route: 048
  2. SEROQUEL XR [Suspect]
     Route: 048
  3. ATIVAN [Concomitant]
  4. SEROQUEL XR [Suspect]
     Indication: BIPOLAR II DISORDER
     Route: 048
     Dates: start: 20060101
  5. CARBAMAZPINE [Concomitant]

REACTIONS (5)
  - SUICIDAL IDEATION [None]
  - DRUG DOSE OMISSION [None]
  - CRYING [None]
  - SOCIAL AVOIDANT BEHAVIOUR [None]
  - INCORRECT DOSE ADMINISTERED [None]
